FAERS Safety Report 21536362 (Version 3)
Quarter: 2023Q2

REPORT INFORMATION
  Report Type: Spontaneous
  Country: US (occurrence: US)
  Receive Date: 20221101
  Receipt Date: 20230519
  Transmission Date: 20230721
  Serious: Yes (Hospitalization, Other)
  Sender: FDA-Public Use
  Company Number: US-PFIZER INC-PV202200093837

PATIENT
  Age: 81 Year
  Sex: Female

DRUGS (2)
  1. XELJANZ XR [Suspect]
     Active Substance: TOFACITINIB CITRATE
     Indication: Rheumatoid arthritis
     Dosage: 11 MG, DAILY
     Route: 048
     Dates: start: 2017
  2. XELJANZ XR [Suspect]
     Active Substance: TOFACITINIB CITRATE
     Dosage: 11 MG, DAILY
     Route: 048

REACTIONS (6)
  - Pneumonia [Recovering/Resolving]
  - Product dose omission in error [Unknown]
  - Pain in extremity [Unknown]
  - Memory impairment [Unknown]
  - Pain [Unknown]
  - Discouragement [Unknown]

NARRATIVE: CASE EVENT DATE: 20221001
